FAERS Safety Report 24223295 (Version 1)
Quarter: 2024Q3

REPORT INFORMATION
  Report Type: Spontaneous
  Country: US (occurrence: US)
  Receive Date: 20240819
  Receipt Date: 20240819
  Transmission Date: 20241017
  Serious: No
  Sender: ANI
  Company Number: US-ANIPHARMA-2023-US-038661

PATIENT
  Sex: Female

DRUGS (2)
  1. ANASTROZOLE [Suspect]
     Active Substance: ANASTROZOLE
     Indication: Breast cancer
     Dosage: 1 TABLET DAILY
     Route: 048
     Dates: start: 20231030
  2. CALCIUM [Concomitant]
     Active Substance: CALCIUM
     Route: 065

REACTIONS (1)
  - White blood cell count decreased [Unknown]

NARRATIVE: CASE EVENT DATE: 20231107
